FAERS Safety Report 7296975-6 (Version None)
Quarter: 2011Q1

REPORT INFORMATION
  Report Type: 
  Country: None (occurrence: None)
  Receive Date: 20110216
  Receipt Date: 20110210
  Transmission Date: 20110831
  Serious: Yes (Hospitalization)
  Sender: FDA-Public Use
  Company Number: ES-PURDUE-GBR-2011-0007761

PATIENT
  Age: 61 Year
  Sex: Female

DRUGS (6)
  1. EUTIROX [Concomitant]
     Indication: HYPOTHYROIDISM
     Dosage: 150 MCG, DAILY
     Route: 055
  2. CITALOPRAM [Interacting]
     Indication: DEPRESSION
     Dosage: 20 MG, DAILY
     Route: 048
     Dates: start: 20091023
  3. FENTANYL [Interacting]
     Indication: CANCER PAIN
     Dosage: UNK
     Route: 048
     Dates: start: 20081201
  4. TRANKIMAZIN [Interacting]
     Indication: PRODUCT USED FOR UNKNOWN INDICATION
     Dosage: 1.5 MG, DAILY
     Route: 048
     Dates: start: 20090101
  5. SEVREDOL 10, COMPRIMIDOS [Suspect]
     Indication: CANCER PAIN
     Dosage: 10 MG, DAILY
     Route: 048
     Dates: start: 20090629, end: 20100114
  6. SIMVASTATIN [Concomitant]
     Indication: HYPERLIPIDAEMIA
     Dosage: 10 MG, DAILY
     Route: 048

REACTIONS (2)
  - DRUG INTERACTION [None]
  - CONFUSIONAL STATE [None]
